FAERS Safety Report 5376248-9 (Version None)
Quarter: 2007Q3

REPORT INFORMATION
  Report Type: 
  Country: None (occurrence: None)
  Receive Date: 20070702
  Receipt Date: 20070621
  Transmission Date: 20080115
  Serious: Yes (Other)
  Sender: FDA-Public Use
  Company Number: JP-ROCHE-489822

PATIENT
  Age: 37 Year
  Sex: Female
  Weight: 50 kg

DRUGS (2)
  1. PEGASYS [Suspect]
     Route: 058
     Dates: start: 20060703, end: 20060731
  2. PEGASYS [Suspect]
     Route: 058
     Dates: start: 20060814

REACTIONS (1)
  - VENTRICULAR EXTRASYSTOLES [None]
